FAERS Safety Report 7479545-6 (Version None)
Quarter: 2011Q2

REPORT INFORMATION
  Report Type: 
  Country: None (occurrence: None)
  Receive Date: 20110513
  Receipt Date: 20110428
  Transmission Date: 20111010
  Serious: Yes (Hospitalization, Other)
  Sender: FDA-Public Use
  Company Number: US-AMGEN-USASP2011020331

PATIENT
  Age: 65 Year
  Sex: Female

DRUGS (1)
  1. ENBREL [Suspect]
     Indication: RHEUMATOID ARTHRITIS
     Dosage: 50 MG, QWK
     Dates: start: 20061117

REACTIONS (9)
  - DIVERTICULUM [None]
  - FATIGUE [None]
  - NAUSEA [None]
  - ABDOMINAL PAIN UPPER [None]
  - NEPHROLITHIASIS [None]
  - FEELING ABNORMAL [None]
  - URINE ABNORMALITY [None]
  - ESCHERICHIA INFECTION [None]
  - VOMITING [None]
